FAERS Safety Report 5175345-0 (Version None)
Quarter: 2006Q4

REPORT INFORMATION
  Report Type: 
  Country: None (occurrence: None)
  Receive Date: 20061211
  Receipt Date: 20061211
  Transmission Date: 20070319
  Serious: Yes (Other)
  Sender: FDA-Public Use
  Company Number: None

PATIENT
  Sex: Female
  Weight: 72.5755 kg

DRUGS (1)
  1. LITHIUM CARBONATE [Suspect]
     Indication: BIPOLAR DISORDER
     Dosage: 300 MG 2 PO
     Route: 048
     Dates: start: 20061130, end: 20061207

REACTIONS (7)
  - CONVULSION [None]
  - CRYING [None]
  - DEPRESSION [None]
  - MUSCLE SPASMS [None]
  - POLLAKIURIA [None]
  - SENSORY DISTURBANCE [None]
  - SUICIDAL IDEATION [None]
